FAERS Safety Report 8422707 (Version 2)
Quarter: 2014Q2

REPORT INFORMATION
  Report Type: Spontaneous
  Country: FR (occurrence: None)
  Receive Date: 20120210
  Receipt Date: 20140630
  Transmission Date: 20141212
  Serious: Yes (Hospitalization)
  Sender: FDA-Public Use
  Company Number: FRA-CLT-2012001

PATIENT
  Age: 37 Year
  Sex: Male

DRUGS (10)
  1. CYSTADANE - BETAINE ANHYDROUS -ORAL POWDER [Suspect]
     Indication: HOMOCYSTINURIA
     Dosage: 3 G EVERY DAY, ORAL
     Route: 048
     Dates: start: 200001
  2. PLAVIX [Concomitant]
  3. TEGRETOL [Concomitant]
  4. SPECIAFOLDINE -FOLIC ACID [Concomitant]
  5. CALCIUM SANDOZ -CALCIUM [Concomitant]
  6. CYSTINE B6 -L-CYSTINE [Concomitant]
  7. BECILAN -PYRIDOXINE [Concomitant]
  8. VITAMIN B12 [Concomitant]
  9. PRAVASTATIN [Concomitant]
  10. FORSTEO -TERIPARATIDE [Concomitant]

REACTIONS (5)
  - Osteonecrosis of jaw [None]
  - Influenza [None]
  - Haematuria [None]
  - Varicose ulceration [None]
  - Dermal cyst [None]
